FAERS Safety Report 19145341 (Version 1)
Quarter: 2021Q2

REPORT INFORMATION
  Report Type: Spontaneous
  Country: IE (occurrence: IE)
  Receive Date: 20210416
  Receipt Date: 20210416
  Transmission Date: 20210717
  Serious: Yes (Other)
  Sender: FDA-Public Use
  Company Number: IE-TEVA-2021-IE-1902233

PATIENT
  Age: 35 Year
  Sex: Female

DRUGS (3)
  1. MIFEPRISTONE [Suspect]
     Active Substance: MIFEPRISTONE
     Indication: ABORTION INDUCED
     Route: 065
  2. OMEPRAZOLE. [Suspect]
     Active Substance: OMEPRAZOLE
     Indication: GASTROOESOPHAGEAL REFLUX DISEASE
     Route: 065
  3. MISOPROSTOL. [Suspect]
     Active Substance: MISOPROSTOL
     Indication: ABORTION INDUCED
     Route: 065

REACTIONS (4)
  - Maternal exposure during pregnancy [Unknown]
  - Ectopic pregnancy termination [Recovered/Resolved]
  - Treatment failure [Unknown]
  - Ectopic pregnancy [Recovered/Resolved]
